FAERS Safety Report 9033548 (Version 1)
Quarter: 2013Q1

REPORT INFORMATION
  Report Type: Spontaneous
  Country: US (occurrence: US)
  Receive Date: 20130128
  Receipt Date: 20130128
  Transmission Date: 20140127
  Serious: No
  Sender: FDA-Public Use
  Company Number: US-MYLANLABS-2012S1026272

PATIENT
  Age: 69 Year
  Sex: Male

DRUGS (11)
  1. BUPROPION HYDROCHLORIDE EXTENDED RELEASE (XL) [Suspect]
     Indication: DEPRESSION
     Route: 048
     Dates: start: 20121001, end: 201211
  2. BUPROPION HYDROCHLORIDE EXTENDED RELEASE (XL) [Suspect]
     Indication: ANXIETY
     Route: 048
     Dates: start: 20121001, end: 201211
  3. BUPROPION HYDROCHLORIDE EXTENDED RELEASE (XL) [Suspect]
     Indication: DEPRESSION
     Route: 048
     Dates: start: 201211, end: 20121130
  4. BUPROPION HYDROCHLORIDE EXTENDED RELEASE (XL) [Suspect]
     Indication: ANXIETY
     Route: 048
     Dates: start: 201211, end: 20121130
  5. LUNESTA [Concomitant]
     Indication: INSOMNIA
     Route: 048
  6. LIPITOR [Concomitant]
     Indication: BLOOD CHOLESTEROL
     Route: 048
  7. ROZEREM [Concomitant]
     Indication: INSOMNIA
     Route: 048
  8. TESTOSTERONE [Concomitant]
  9. AMBIEN CR [Concomitant]
  10. VALIUM [Concomitant]
  11. ATIVAN [Concomitant]

REACTIONS (10)
  - Depression [Recovered/Resolved]
  - Amnesia [Recovered/Resolved]
  - Memory impairment [Recovered/Resolved]
  - Micturition urgency [Recovered/Resolved]
  - Drug interaction [Recovered/Resolved]
  - Insomnia [Recovered/Resolved]
  - Fatigue [Recovered/Resolved]
  - Memory impairment [Recovered/Resolved]
  - Dry mouth [Recovered/Resolved]
  - Decreased appetite [Recovered/Resolved]
